FAERS Safety Report 13347014 (Version 1)
Quarter: 2017Q1

REPORT INFORMATION
  Report Type: Spontaneous
  Country: GB (occurrence: GB)
  Receive Date: 20170317
  Receipt Date: 20170317
  Transmission Date: 20170428
  Serious: Yes (Death, Other)
  Sender: FDA-Public Use
  Company Number: GB-PURDUE-GBR-2017-0044030

PATIENT
  Age: 71 Year
  Sex: Female

DRUGS (2)
  1. BUTRANS [Suspect]
     Active Substance: BUPRENORPHINE
     Dosage: 10 MCG, Q1H
     Route: 062
     Dates: start: 20170112, end: 20170130
  2. BUTRANS [Suspect]
     Active Substance: BUPRENORPHINE
     Indication: PAIN
     Dosage: 20 MCG, Q1H
     Route: 062
     Dates: start: 20170116, end: 20170130

REACTIONS (4)
  - Brain neoplasm [Fatal]
  - Application site laceration [Recovered/Resolved]
  - Application site pain [Recovered/Resolved]
  - Application site bruise [Recovered/Resolved]

NARRATIVE: CASE EVENT DATE: 20170123
